FAERS Safety Report 10473732 (Version 1)
Quarter: 2014Q3

REPORT INFORMATION
  Report Type: Report from Study
  Country: US (occurrence: US)
  Receive Date: 20140924
  Receipt Date: 20140924
  Transmission Date: 20150326
  Serious: Yes (Other)
  Sender: FDA-Public Use
  Company Number: US-BRISTOL-MYERS SQUIBB COMPANY-21405774

PATIENT
  Sex: Male

DRUGS (1)
  1. YERVOY [Suspect]
     Active Substance: IPILIMUMAB

REACTIONS (4)
  - Abdominal distension [Not Recovered/Not Resolved]
  - Abdominal pain [Unknown]
  - Thyroid function test abnormal [Unknown]
  - Headache [Unknown]
